FAERS Safety Report 24582225 (Version 1)
Quarter: 2024Q4

REPORT INFORMATION
  Report Type: Spontaneous
  Country: US (occurrence: US)
  Receive Date: 20241105
  Receipt Date: 20241105
  Transmission Date: 20250114
  Serious: Yes (Other)
  Sender: GLAXOSMITHKLINE
  Company Number: US-GSK-US2024AMR134751

PATIENT

DRUGS (1)
  1. ADVAIR HFA [Suspect]
     Active Substance: FLUTICASONE PROPIONATE\SALMETEROL XINAFOATE
     Indication: Chronic obstructive pulmonary disease
     Dosage: 2 PUFF(S), BID
     Route: 055

REACTIONS (5)
  - Pneumonia pneumococcal [Unknown]
  - Weight decreased [Unknown]
  - Drug tolerance [Unknown]
  - Treatment noncompliance [Unknown]
  - Drug ineffective [Unknown]
